FAERS Safety Report 6223481-X (Version None)
Quarter: 2009Q2

REPORT INFORMATION
  Report Type: 
  Country: None (occurrence: None)
  Receive Date: 20090609
  Receipt Date: 20090603
  Transmission Date: 20091009
  Serious: Yes (Death, Other)
  Sender: FDA-Public Use
  Company Number: US-WYE-H08657809

PATIENT
  Age: 48 Year
  Sex: Female

DRUGS (3)
  1. PREMARIN [Suspect]
  2. NORETHINDRONE ACETATE [Suspect]
  3. PROVERA [Suspect]

REACTIONS (10)
  - BREAST CANCER METASTATIC [None]
  - METASTASES TO BONE [None]
  - METASTASES TO CENTRAL NERVOUS SYSTEM [None]
  - METASTASES TO LIVER [None]
  - NEUTROPENIA [None]
  - PLEURAL EFFUSION [None]
  - PORTAL VEIN THROMBOSIS [None]
  - SPLENIC VEIN THROMBOSIS [None]
  - THROMBOSIS MESENTERIC VESSEL [None]
  - VENA CAVA THROMBOSIS [None]
